FAERS Safety Report 5117251-3 (Version None)
Quarter: 2006Q3

REPORT INFORMATION
  Report Type: 
  Country: None (occurrence: None)
  Receive Date: 20060929
  Receipt Date: 20041213
  Transmission Date: 20061208
  Serious: Yes (Death, Hospitalization, Other)
  Sender: FDA-Public Use
  Company Number: PHRM2004FR03645

PATIENT
  Age: 85 Year
  Sex: Male

DRUGS (5)
  1. ZOMETA [Suspect]
     Indication: METASTASES TO BONE
     Dosage: 4 MG, QMO
     Route: 042
     Dates: start: 20041015, end: 20041110
  2. ZOCOR [Suspect]
     Indication: HYPERCHOLESTEROLAEMIA
     Route: 048
     Dates: end: 20041126
  3. XATRAL [Suspect]
     Route: 048
     Dates: end: 20041126
  4. PROSCAR [Suspect]
     Route: 048
     Dates: end: 20041126
  5. ASPIRIN [Concomitant]
     Indication: OSTEOARTHRITIS
     Dosage: INTAKE FROM TIME TO TIME

REACTIONS (15)
  - ALANINE AMINOTRANSFERASE INCREASED [None]
  - ANURIA [None]
  - ASPARTATE AMINOTRANSFERASE INCREASED [None]
  - ASTHENIA [None]
  - CYTOLYTIC HEPATITIS [None]
  - DISSEMINATED INTRAVASCULAR COAGULATION [None]
  - HYPERKALAEMIA [None]
  - MALAISE [None]
  - MULTI-ORGAN FAILURE [None]
  - NAUSEA [None]
  - NEUTROPENIA [None]
  - OLIGURIA [None]
  - PLATELET COUNT DECREASED [None]
  - PROTHROMBIN TIME RATIO DECREASED [None]
  - RENAL FAILURE ACUTE [None]
